FAERS Safety Report 16733416 (Version 1)
Quarter: 2019Q3

REPORT INFORMATION
  Report Type: Spontaneous
  Country: AU (occurrence: AU)
  Receive Date: 20190823
  Receipt Date: 20190823
  Transmission Date: 20191005
  Serious: Yes (Life-Threatening, Other)
  Sender: FDA-Public Use
  Company Number: AU-LUPIN PHARMACEUTICALS INC.-2019-05289

PATIENT
  Age: 74 Year
  Sex: Male

DRUGS (11)
  1. CARVEDILOL. [Suspect]
     Active Substance: CARVEDILOL
     Indication: ATRIOVENTRICULAR BLOCK
     Dosage: 3.125 MILLIGRAM, QD
     Route: 065
  2. SERTRALINE [Concomitant]
     Active Substance: SERTRALINE HYDROCHLORIDE
     Indication: PRODUCT USED FOR UNKNOWN INDICATION
     Dosage: 50 MILLIGRAM, QD
     Route: 065
  3. PERINDOPRIL [Suspect]
     Active Substance: PERINDOPRIL
     Indication: LEFT VENTRICULAR DYSFUNCTION
     Dosage: 2.5 MILLIGRAM
     Route: 065
  4. BUDESONIDE;FORMOTEROL [Concomitant]
     Active Substance: BUDESONIDE\FORMOTEROL
     Indication: PRODUCT USED FOR UNKNOWN INDICATION
     Dosage: 200/6 MG, BID
     Route: 065
  5. CARVEDILOL. [Suspect]
     Active Substance: CARVEDILOL
     Indication: LEFT VENTRICULAR DYSFUNCTION
  6. METHYLPREDNISOLONE. [Concomitant]
     Active Substance: METHYLPREDNISOLONE
     Indication: PRODUCT USED FOR UNKNOWN INDICATION
     Dosage: 1 GRAM, QD, FOR 3 DAYS
     Route: 042
  7. NIVOLUMAB [Concomitant]
     Active Substance: NIVOLUMAB
     Indication: NON-SMALL CELL LUNG CANCER
     Dosage: UNK
     Route: 065
  8. PREDNISOLONE. [Concomitant]
     Active Substance: PREDNISOLONE
     Indication: PRODUCT USED FOR UNKNOWN INDICATION
     Dosage: UNK, QD, 1 MG/KG
     Route: 048
  9. PERINDOPRIL [Suspect]
     Active Substance: PERINDOPRIL
     Indication: MYOCARDITIS
  10. PERINDOPRIL [Suspect]
     Active Substance: PERINDOPRIL
     Indication: ATRIOVENTRICULAR BLOCK
  11. CARVEDILOL. [Suspect]
     Active Substance: CARVEDILOL
     Indication: MYOCARDITIS
     Dosage: RESTARTED
     Route: 065

REACTIONS (3)
  - Drug ineffective [Unknown]
  - Atrioventricular block [Not Recovered/Not Resolved]
  - Left ventricular dysfunction [Not Recovered/Not Resolved]
